FAERS Safety Report 4838249-6 (Version None)
Quarter: 2005Q4

REPORT INFORMATION
  Report Type: 
  Country: None (occurrence: None)
  Receive Date: 20051128
  Receipt Date: 20051004
  Transmission Date: 20060501
  Serious: Yes (Hospitalization)
  Sender: FDA-Public Use
  Company Number: US-MERCK-0510USA03194

PATIENT
  Age: 80 Year
  Sex: Male
  Weight: 100 kg

DRUGS (4)
  1. VIOXX [Suspect]
     Indication: RHEUMATOID ARTHRITIS
     Route: 048
     Dates: start: 20030101, end: 20040101
  2. GLIPIZIDE [Concomitant]
     Route: 048
  3. ISOSORBIDE MONONITRATE [Concomitant]
     Route: 065
  4. ERY-TAB [Concomitant]
     Route: 065

REACTIONS (1)
  - MYOCARDIAL INFARCTION [None]
